FAERS Safety Report 7275470-4 (Version None)
Quarter: 2011Q1

REPORT INFORMATION
  Report Type: 
  Country: None (occurrence: None)
  Receive Date: 20110126
  Receipt Date: 20101116
  Transmission Date: 20110831
  Serious: Yes (Other)
  Sender: FDA-Public Use
  Company Number: 2010SP060432

PATIENT
  Age: 45 Year
  Sex: Female

DRUGS (1)
  1. LINESSA (DESOGESTREL/ ETHINYLESTRADIOL / 00570801 / ) [Suspect]
     Indication: PRODUCT USED FOR UNKNOWN INDICATION

REACTIONS (3)
  - VISION BLURRED [None]
  - ABDOMINAL PAIN [None]
  - FATIGUE [None]
